FAERS Safety Report 8770425 (Version 2)
Quarter: 2012Q4

REPORT INFORMATION
  Report Type: 
  Country: US (occurrence: US)
  Receive Date: 20120906
  Receipt Date: 20120906
  Transmission Date: 20130627
  Serious: Yes (Hospitalization, Other)
  Sender: FDA-Public Use
  Company Number: PHEH2012US008752

PATIENT
  Sex: Female

DRUGS (2)
  1. TOBI [Suspect]
     Indication: LUNG INFECTION PSEUDOMONAL
     Dosage: 300 mg/5ml, BID
  2. WARFARIN [Concomitant]
     Dosage: UNK UKN, UNK

REACTIONS (12)
  - Haematochezia [Unknown]
  - Dyspnoea [Unknown]
  - Throat irritation [Unknown]
  - Dry mouth [Unknown]
  - Tongue dry [Unknown]
  - Swollen tongue [Unknown]
  - Cheilitis [Unknown]
  - Wheezing [Unknown]
  - Decreased appetite [Unknown]
  - Weight fluctuation [Unknown]
  - Dysphonia [Unknown]
  - Nausea [Unknown]
